FAERS Safety Report 25031121 (Version 1)
Quarter: 2025Q1

REPORT INFORMATION
  Report Type: Report from Study
  Country: US (occurrence: US)
  Receive Date: 20250303
  Receipt Date: 20250303
  Transmission Date: 20250409
  Serious: Yes (Disabling)
  Sender: GILEAD
  Company Number: US-GILEAD-2025-0705604

PATIENT
  Sex: Male

DRUGS (1)
  1. AZTREONAM LYSINE [Suspect]
     Active Substance: AZTREONAM LYSINE
     Indication: Cystic fibrosis lung
     Dosage: 75 MG, TID [ RECONSTITUTE WITH PROVIDED DILUENT AND INHALE THE CONTENTS OF 1 VIAL VIA PARI ALTERA NE
     Route: 055
     Dates: start: 20201020

REACTIONS (1)
  - Nasopharyngitis [Recovering/Resolving]
